FAERS Safety Report 9417860 (Version 1)
Quarter: 2013Q3

REPORT INFORMATION
  Report Type: Spontaneous
  Country: US (occurrence: US)
  Receive Date: 20130724
  Receipt Date: 20130724
  Transmission Date: 20140515
  Serious: No
  Sender: FDA-Public Use
  Company Number: US-BAUSCH-BL-2012-002148

PATIENT
  Age: 69 Year
  Sex: Female

DRUGS (2)
  1. OPCON-A [Suspect]
     Indication: EYE PRURITUS
     Dosage: 1 DROP; ONCE; LEFT EYE
     Route: 047
     Dates: start: 20121206, end: 20121206
  2. OPCON-A [Suspect]
     Dosage: 4 DROP; ONCE; RIGHT EYE
     Route: 047
     Dates: start: 20121206, end: 20121206

REACTIONS (3)
  - Incorrect dose administered [Unknown]
  - Eye irritation [Recovered/Resolved]
  - Product taste abnormal [Recovered/Resolved]
